FAERS Safety Report 6065560-6 (Version None)
Quarter: 2009Q1

REPORT INFORMATION
  Report Type: 
  Country: None (occurrence: None)
  Receive Date: 20090204
  Receipt Date: 20090108
  Transmission Date: 20090719
  Serious: No
  Sender: FDA-Public Use
  Company Number: US-B.I. PHARMACEUTICALS,INC./RIDGEFIELD-2009-BP-00326BP

PATIENT
  Sex: Male

DRUGS (5)
  1. SPIRIVA [Suspect]
     Indication: CHRONIC OBSTRUCTIVE PULMONARY DISEASE
     Dosage: 18MCG
     Route: 055
     Dates: start: 20081103
  2. ADVAIR DISKUS 100/50 [Concomitant]
     Indication: CHRONIC OBSTRUCTIVE PULMONARY DISEASE
     Route: 055
     Dates: start: 20081103
  3. ATENOLOL [Concomitant]
     Indication: HYPERTENSION
     Route: 048
  4. DIAZEPAM [Concomitant]
     Indication: BACK DISORDER
     Route: 048
  5. NAPROXEN [Concomitant]
     Indication: BACK DISORDER
     Route: 048

REACTIONS (2)
  - DYSPHONIA [None]
  - NASOPHARYNGITIS [None]
